FAERS Safety Report 9563534 (Version 1)
Quarter: 2013Q1

REPORT INFORMATION
  Report Type: Spontaneous
  Country: US (occurrence: None)
  Receive Date: 20121227
  Receipt Date: 20121227
  Transmission Date: 20140127
  Serious: Yes (Hospitalization)
  Sender: FDA-Public Use
  Company Number: PHEH2012US000874

PATIENT
  Age: 33 Year
  Sex: Female
  Weight: 113 kg

DRUGS (3)
  1. EXJADE (*CGP 72670*) [Suspect]
     Indication: SICKLE CELL ANAEMIA
     Route: 048
  2. EXJADE (*CGP 72670*) [Suspect]
     Indication: IRON METABOLISM DISORDER
     Route: 048
  3. RED BLOOD CELLS (RED BLOOD CELLS) [Concomitant]

REACTIONS (6)
  - Malaise [None]
  - Chest pain [None]
  - Back pain [None]
  - Pain in extremity [None]
  - Pain [None]
  - Sickle cell anaemia with crisis [None]
